FAERS Safety Report 25452363 (Version 3)
Quarter: 2025Q4

REPORT INFORMATION
  Report Type: Spontaneous
  Country: US (occurrence: US)
  Receive Date: 20250618
  Receipt Date: 20251116
  Transmission Date: 20260118
  Serious: No
  Sender: ELI LILLY AND COMPANY
  Company Number: US-ELI_LILLY_AND_COMPANY-US202506006032

PATIENT
  Age: 74 Year
  Sex: Female
  Weight: 50.794 kg

DRUGS (10)
  1. KISUNLA [Suspect]
     Active Substance: DONANEMAB-AZBT
     Indication: Product used for unknown indication
     Dosage: 700 MG, MONTHLY (1/M) (1ST INFUSION)
     Route: 042
     Dates: start: 202409
  2. KISUNLA [Suspect]
     Active Substance: DONANEMAB-AZBT
     Dosage: 700 MG, MONTHLY (1/M) (2ND INFUSION)
     Route: 042
  3. KISUNLA [Suspect]
     Active Substance: DONANEMAB-AZBT
     Dosage: 700 MG, MONTHLY (1/M) (3RD INFUSION)
     Route: 042
  4. KISUNLA [Suspect]
     Active Substance: DONANEMAB-AZBT
     Dosage: 1400 MG, MONTHLY (1/M) (4TH INFUSION)
     Route: 042
  5. KISUNLA [Suspect]
     Active Substance: DONANEMAB-AZBT
     Dosage: 1400 MG, MONTHLY (1/M) (6TH INFUSION)
     Route: 042
  6. KISUNLA [Suspect]
     Active Substance: DONANEMAB-AZBT
     Dosage: 1400 MG, MONTHLY (1/M) (11TH INFUSION)
     Route: 042
     Dates: start: 202510
  7. VENLAFAXINE [Concomitant]
     Active Substance: VENLAFAXINE HYDROCHLORIDE
     Indication: Product used for unknown indication
     Dosage: UNK UNK, UNKNOWN
     Route: 065
  8. ESCITALOPRAM [Concomitant]
     Active Substance: ESCITALOPRAM OXALATE
     Indication: Product used for unknown indication
     Dosage: UNK UNK, UNKNOWN
     Route: 065
  9. DONEPEZIL [Concomitant]
     Active Substance: DONEPEZIL
     Indication: Product used for unknown indication
     Dosage: UNK UNK, UNKNOWN
     Route: 065
  10. MEMANTINE [Concomitant]
     Active Substance: MEMANTINE
     Indication: Product used for unknown indication
     Dosage: UNK UNK, UNKNOWN
     Route: 065

REACTIONS (1)
  - Depression [Recovering/Resolving]
